FAERS Safety Report 8332996-X (Version None)
Quarter: 2012Q2

REPORT INFORMATION
  Report Type: 
  Country: None (occurrence: None)
  Receive Date: 20120503
  Receipt Date: 20120425
  Transmission Date: 20120825
  Serious: Yes (Hospitalization, Other)
  Sender: FDA-Public Use
  Company Number: PHHO2011FR13105

PATIENT
  Sex: Male
  Weight: 97 kg

DRUGS (17)
  1. LASIX [Concomitant]
     Dosage: 125 MG, UNK
     Route: 048
     Dates: start: 20110723, end: 20110723
  2. SIMULECT [Concomitant]
     Indication: RENAL TRANSPLANT
     Dosage: UNK
  3. MYCOPHENOLATE MOFETIL (CELLCEPT) [Concomitant]
     Indication: TRANSPLANT REJECTION
     Dosage: 2 G, UNK
     Route: 048
     Dates: start: 20110705
  4. PREDNISOLONE [Concomitant]
     Dosage: 10 MG, UNK
     Route: 048
     Dates: start: 20110723
  5. NEORAL [Suspect]
     Indication: RENAL TRANSPLANT
     Dosage: 200 MG, UNK
     Route: 048
     Dates: start: 20110705, end: 20110721
  6. ASPIRIN [Concomitant]
     Dosage: 75 MG, UNK
     Route: 048
     Dates: start: 20110706, end: 20110721
  7. ATENOLOL [Concomitant]
     Dosage: 25 MG, UNK
     Route: 048
     Dates: start: 20110708
  8. PREDNISOLONE [Concomitant]
     Dosage: UNK
  9. ESOMEPRAZOLE [Concomitant]
  10. SOLU-MEDROL [Concomitant]
     Indication: RENAL TRANSPLANT
     Dosage: 5 MG, UNK
     Route: 042
     Dates: start: 20110706
  11. EPREX [Concomitant]
     Dosage: 10000 IU, UNK
     Dates: start: 20110711
  12. NEORAL [Suspect]
     Dosage: 450 MG, UNK
     Route: 048
     Dates: start: 20110722, end: 20110722
  13. VALGANCICLOVIR [Concomitant]
  14. LASIX [Concomitant]
     Dosage: 40 MG, UNK
     Route: 048
     Dates: start: 20110726
  15. NEORAL [Suspect]
     Dosage: 400 MG, UNK
     Route: 048
     Dates: start: 20110723
  16. ATORVASTATIN [Concomitant]
     Dosage: 10 MG, UNK
     Route: 048
     Dates: start: 20110709
  17. ALFUZOSIN HCL [Concomitant]
     Dosage: 10 MG, UNK
     Dates: start: 20110718

REACTIONS (8)
  - ACUTE PRERENAL FAILURE [None]
  - OVERDOSE [None]
  - RENAL FAILURE [None]
  - URETHRAL STENOSIS [None]
  - IMMUNOSUPPRESSANT DRUG LEVEL INCREASED [None]
  - HYDRONEPHROSIS [None]
  - PNEUMONIA ASPIRATION [None]
  - DISEASE PROGRESSION [None]
